FAERS Safety Report 5125623-6 (Version None)
Quarter: 2006Q4

REPORT INFORMATION
  Report Type: 
  Country: None (occurrence: None)
  Receive Date: 20061006
  Receipt Date: 20060920
  Transmission Date: 20070319
  Serious: Yes (Hospitalization)
  Sender: FDA-Public Use
  Company Number: REM_00242_2006

PATIENT
  Age: 11 Year
  Sex: Male
  Weight: 24.1 kg

DRUGS (3)
  1. REMODULIN [Suspect]
     Indication: PULMONARY HYPERTENSION
     Dosage: 142 NG/KG/MIN CONTINUOUS IV
     Route: 042
     Dates: start: 20050525
  2. COUMADIN [Concomitant]
  3. SILDENAFIL [Concomitant]

REACTIONS (3)
  - CATHETER RELATED INFECTION [None]
  - DISEASE RECURRENCE [None]
  - PSEUDOMONAS INFECTION [None]
